FAERS Safety Report 10170007 (Version 2)
Quarter: 2014Q3

REPORT INFORMATION
  Report Type: Spontaneous
  Country: DE (occurrence: DE)
  Receive Date: 20140513
  Receipt Date: 20140711
  Transmission Date: 20150326
  Serious: Yes (Other)
  Sender: FDA-Public Use
  Company Number: DE-BAYER-2014-069215

PATIENT
  Age: 64 Year
  Sex: Male
  Weight: 74 kg

DRUGS (7)
  1. CARMEN [Concomitant]
     Active Substance: LERCANIDIPINE
     Indication: HYPERTENSION
     Dosage: 10 MG, QD
     Dates: start: 2012
  2. NEXAVAR [Suspect]
     Active Substance: SORAFENIB
     Indication: RENAL CELL CARCINOMA STAGE IV
     Dosage: 400 MG, BID
     Route: 048
     Dates: start: 20140317, end: 20140624
  3. NEXAVAR [Suspect]
     Active Substance: SORAFENIB
     Indication: METASTASES TO LUNG
  4. LEVOTHYROXIN [Concomitant]
     Active Substance: LEVOTHYROXINE
     Dosage: 50 MG, QD
  5. ALLOPURINOL. [Concomitant]
     Active Substance: ALLOPURINOL
     Dosage: 100 MG, QD
  6. NEXAVAR [Suspect]
     Active Substance: SORAFENIB
     Indication: METASTASES TO LIVER
  7. CONCOR [Concomitant]
     Active Substance: BISOPROLOL FUMARATE
     Indication: HYPERTENSION
     Dosage: 2.5 MG, QD
     Dates: start: 2012

REACTIONS (5)
  - Diarrhoea [None]
  - Muscle spasms [None]
  - Renal cancer [None]
  - Blood creatine phosphokinase increased [Recovered/Resolved]
  - Cough [None]

NARRATIVE: CASE EVENT DATE: 20140428
